FAERS Safety Report 24554729 (Version 1)
Quarter: 2024Q4

REPORT INFORMATION
  Report Type: Spontaneous
  Country: US (occurrence: US)
  Receive Date: 20241028
  Receipt Date: 20241028
  Transmission Date: 20250115
  Serious: Yes (Death, Other)
  Sender: NOVITIUM PHARMA
  Company Number: US-NOVITIUMPHARMA-2024USNVP02354

PATIENT
  Age: 50 Year
  Sex: Female

DRUGS (13)
  1. L-GLUTAMINE [Suspect]
     Active Substance: GLUTAMINE
     Indication: Sickle cell disease
     Route: 048
     Dates: start: 20240806
  2. OXBRYTA [Concomitant]
     Active Substance: VOXELOTOR
     Indication: Sickle cell disease
     Route: 048
  3. HYDROXYUREA [Concomitant]
     Active Substance: HYDROXYUREA
     Indication: Product used for unknown indication
  4. Xarel [Concomitant]
     Indication: Product used for unknown indication
  5. CYANOCOBALAMIN [Concomitant]
     Active Substance: CYANOCOBALAMIN
     Indication: Product used for unknown indication
     Dosage: MCG/ML, 1 ML
  6. FOLIC ACID [Concomitant]
     Active Substance: FOLIC ACID
     Indication: Product used for unknown indication
  7. CHLOROPHYLL [Concomitant]
     Indication: Product used for unknown indication
  8. COENZYME Q10 [Concomitant]
     Active Substance: DIETARY SUPPLEMENT\UBIDECARENONE
     Indication: Product used for unknown indication
  9. FISH OIL [Concomitant]
     Active Substance: FISH OIL
     Indication: Product used for unknown indication
  10. VITAMINS [Concomitant]
     Active Substance: VITAMINS
     Indication: Product used for unknown indication
     Dosage: ADULTS TABLETS
  11. VITAMIN C [Concomitant]
     Active Substance: ASCORBIC ACID
     Indication: Product used for unknown indication
  12. VITAMIN D [Concomitant]
     Active Substance: VITAMIN D NOS
  13. CALCIUM [Concomitant]
     Active Substance: CALCIUM
     Indication: Product used for unknown indication

REACTIONS (3)
  - Death [Fatal]
  - Product substitution issue [Unknown]
  - Pain [Unknown]
